FAERS Safety Report 11178903 (Version 1)
Quarter: 2015Q2

REPORT INFORMATION
  Report Type: Spontaneous
  Country: US (occurrence: None)
  Receive Date: 20150603
  Receipt Date: 20150603
  Transmission Date: 20150821
  Serious: Yes (Hospitalization)
  Sender: FDA-Public Use
  Company Number: GTI003229

PATIENT
  Age: 67 Year
  Sex: Female
  Weight: 66.68 kg

DRUGS (32)
  1. ACETAMINOPHEN. [Concomitant]
     Active Substance: ACETAMINOPHEN
  2. LORAZEPAM. [Concomitant]
     Active Substance: LORAZEPAM
  3. PROLASTIN-C [Suspect]
     Active Substance: .ALPHA.1-PROTEINASE INHIBITOR HUMAN
     Indication: ALPHA-1 ANTI-TRYPSIN DEFICIENCY
     Route: 042
     Dates: start: 20150504
  4. ALBUTEROL SULFATE. [Concomitant]
     Active Substance: ALBUTEROL SULFATE
  5. AMOXICILLIIN [Concomitant]
  6. ATROVENT [Concomitant]
     Active Substance: IPRATROPIUM BROMIDE
  7. NOVOLOG [Concomitant]
     Active Substance: INSULIN ASPART
  8. ONGLYZA [Concomitant]
     Active Substance: SAXAGLIPTIN HYDROCHLORIDE
  9. SIMVASTATIN. [Concomitant]
     Active Substance: SIMVASTATIN
  10. ERYTHROMYCIN/00020902/ [Concomitant]
  11. CODEINE/00012602/ [Concomitant]
  12. FLUCONAZOLE. [Concomitant]
     Active Substance: FLUCONAZOLE
  13. CETRIZINE [Concomitant]
     Active Substance: CETIRIZINE HYDROCHLORIDE
  14. FERROUS SULFATE [Concomitant]
     Active Substance: FERROUS SULFATE\FERROUS SULFATE, DRIED
  15. FLONASE [Concomitant]
     Active Substance: FLUTICASONE PROPIONATE
  16. XOPENEX [Concomitant]
     Active Substance: LEVALBUTEROL HYDROCHLORIDE
  17. MAXZIDE [Concomitant]
     Active Substance: HYDROCHLOROTHIAZIDE\TRIAMTERENE
  18. ZETIA [Concomitant]
     Active Substance: EZETIMIBE
  19. SULFONAMIDE [Concomitant]
     Active Substance: UNSPECIFIED INGREDIENT
  20. VANCOMYCIN/00314402/ [Concomitant]
  21. CALCITRIOL. [Concomitant]
     Active Substance: CALCITRIOL
  22. ZYPREXA [Concomitant]
     Active Substance: OLANZAPINE
  23. SINGULAIR [Concomitant]
     Active Substance: MONTELUKAST SODIUM
  24. HYDROCODONE/00060002/ [Concomitant]
  25. METOPROLOL [Concomitant]
     Active Substance: METOPROLOL
  26. VICODIN [Concomitant]
     Active Substance: ACETAMINOPHEN\HYDROCODONE BITARTRATE
  27. ACIPHEX [Concomitant]
     Active Substance: RABEPRAZOLE SODIUM
  28. ASA [Concomitant]
     Active Substance: ASPIRIN
  29. GLYBURIDE W/METFORMIN [Concomitant]
  30. SYMBICORT [Concomitant]
     Active Substance: BUDESONIDE\FORMOTEROL FUMARATE DIHYDRATE
  31. ESOMEPRAZOLE [Concomitant]
     Active Substance: ESOMEPRAZOLE
  32. PANTOPRAZOLE/01263204/ [Concomitant]

REACTIONS (8)
  - Nausea [None]
  - Pneumonia [None]
  - Vomiting [None]
  - Gastrointestinal disorder [None]
  - Abdominal discomfort [None]
  - Clostridium difficile colitis [None]
  - Treatment noncompliance [None]
  - Chronic obstructive pulmonary disease [None]

NARRATIVE: CASE EVENT DATE: 20150510
